FAERS Safety Report 7797089-9 (Version None)
Quarter: 2011Q4

REPORT INFORMATION
  Report Type: 
  Country: None (occurrence: None)
  Receive Date: 20111005
  Receipt Date: 20110928
  Transmission Date: 20120403
  Serious: Yes (Other)
  Sender: FDA-Public Use
  Company Number: ES-ABBOTT-11P-144-0854066-00

PATIENT
  Age: 2 Year
  Sex: Female

DRUGS (2)
  1. DEPAKENE [Suspect]
     Indication: EPILEPSY
     Route: 065
  2. OXCARBAZEPINE [Concomitant]
     Indication: EPILEPSY

REACTIONS (5)
  - POSTURE ABNORMAL [None]
  - EYE MOVEMENT DISORDER [None]
  - NYSTAGMUS [None]
  - GAIT DISTURBANCE [None]
  - CEREBELLAR SYNDROME [None]
